FAERS Safety Report 9681933 (Version 7)
Quarter: 2014Q1

REPORT INFORMATION
  Report Type: Report from Study
  Country: ZM (occurrence: ZM)
  Receive Date: 20131111
  Receipt Date: 20140122
  Transmission Date: 20141002
  Serious: Yes (Death, Life-Threatening, Hospitalization, Other)
  Sender: FDA-Public Use
  Company Number: ZM-B.I. PHARMACEUTICALS,INC./RIDGEFIELD-2013-BI-12463BP

PATIENT
  Age: 4 Day
  Sex: Female
  Weight: 6.9 kg

DRUGS (5)
  1. VIRAMUNE SUSPENSION [Suspect]
     Indication: PROPHYLAXIS AGAINST HIV INFECTION
     Dosage: 15 MG
     Route: 048
     Dates: start: 20130425, end: 20130612
  2. VIRAMUNE TABLETS [Suspect]
     Indication: PROPHYLAXIS AGAINST HIV INFECTION
     Dosage: 400 MG
     Route: 064
     Dates: start: 20130321
  3. VIRAMUNE TABLETS [Suspect]
     Dosage: 400 MG
     Route: 063
     Dates: start: 20130425
  4. EMTRICITABINE/TENOFOVIR DISPROXIL FUMARATE [Suspect]
     Indication: PROPHYLAXIS AGAINST HIV INFECTION
     Dosage: 200/300 MG
     Route: 064
     Dates: start: 20130321
  5. EMTRICITABINE/TENOFOVIR DISPROXIL FUMARATE [Suspect]
     Dosage: 200/300 MG
     Route: 063
     Dates: start: 20130425

REACTIONS (8)
  - Congenital megacolon [Fatal]
  - Anaemia [Not Recovered/Not Resolved]
  - Sickle cell anaemia with crisis [Recovered/Resolved]
  - Neutropenia [Recovered/Resolved]
  - Sepsis neonatal [Recovered/Resolved]
  - Intestinal obstruction [Recovered/Resolved]
  - Ileus paralytic [Recovered/Resolved]
  - Dehydration [Recovered/Resolved]
